FAERS Safety Report 14607380 (Version 1)
Quarter: 2018Q1

REPORT INFORMATION
  Report Type: Spontaneous
  Country: IL (occurrence: IL)
  Receive Date: 20180307
  Receipt Date: 20180307
  Transmission Date: 20180509
  Serious: Yes (Other)
  Sender: FDA-Public Use
  Company Number: IL-CHEPLA-C20180196

PATIENT
  Age: 59 Year
  Sex: Female
  Weight: 90 kg

DRUGS (1)
  1. XENICAL [Suspect]
     Active Substance: ORLISTAT
     Indication: OBESITY
     Dosage: 0-3 CAPSULES (0-360MG) PER DAY
     Route: 048
     Dates: start: 201801, end: 20180223

REACTIONS (1)
  - Productive cough [Recovering/Resolving]
